FAERS Safety Report 24670401 (Version 1)
Quarter: 2024Q4

REPORT INFORMATION
  Report Type: Spontaneous
  Country: NL (occurrence: NL)
  Receive Date: 20241127
  Receipt Date: 20241127
  Transmission Date: 20250115
  Serious: Yes (Life-Threatening, Hospitalization)
  Sender: TEVA
  Company Number: None

PATIENT
  Age: 45 Year
  Sex: Male
  Weight: 57 kg

DRUGS (4)
  1. OXALIPLATIN [Suspect]
     Active Substance: OXALIPLATIN
     Indication: Colon cancer
     Dosage: OXALIPLATINE INFOPL CONC / BRAND NAME NOT SPECIFIED
     Route: 065
     Dates: start: 20240704, end: 20240725
  2. CEFUROXIME [Concomitant]
     Active Substance: CEFUROXIME
     Indication: Product used for unknown indication
     Dosage: DOSAGE: 15 MG/ML INFUSION FLUID; CEFUROXIM INFVLST/ BRAND NAME NOT SPECIFIED
     Route: 065
  3. CAPECITABINE [Suspect]
     Active Substance: CAPECITABINE
     Indication: Colon cancer
     Dosage: 3 TO 4 PIECES TWICE A DAY; TABLET FO / BRAND NAME NOT SPECIFIED
     Route: 048
     Dates: start: 20240704, end: 20240808
  4. POTASSIUM CHLORIDE [Concomitant]
     Active Substance: POTASSIUM CHLORIDE
     Indication: Product used for unknown indication
     Dosage: DRIP,1 MG/MG (MILLIGRAM PER MILLIGRAM); BRAND NAME NOT SPECIFIED
     Route: 065

REACTIONS (1)
  - Necrotising oesophagitis [Recovering/Resolving]
